FAERS Safety Report 15558605 (Version 1)
Quarter: 2018Q4

REPORT INFORMATION
  Report Type: Other
  Country: FR (occurrence: FR)
  Receive Date: 20181029
  Receipt Date: 20181029
  Transmission Date: 20190205
  Serious: Yes (Hospitalization)
  Sender: FDA-Public Use
  Company Number: FR-DENTSPLY-2018SCDP000469

PATIENT
  Age: 34 Year
  Sex: Female

DRUGS (9)
  1. SYNTOCINON [Suspect]
     Active Substance: OXYTOCIN
     Indication: LABOUR INDUCTION
     Dosage: UNK
     Route: 008
     Dates: start: 20161025
  2. ATARAX [Suspect]
     Active Substance: HYDROXYZINE HYDROCHLORIDE
     Indication: ANAESTHETIC PREMEDICATION
     Dosage: 25 MG, UNK
     Route: 048
     Dates: start: 20161025, end: 20161025
  3. BIPROFENID [Suspect]
     Active Substance: KETOPROFEN
     Indication: ANTIINFLAMMATORY THERAPY
     Dosage: UNK
     Route: 048
     Dates: start: 20161026
  4. XYLOCAINE WITH ADRENALINE (EPINEPHRINE) [Suspect]
     Active Substance: EPINEPHRINE BITARTRATE\LIDOCAINE HYDROCHLORIDE
     Indication: EPIDURAL ANAESTHESIA
     Dosage: UNK
     Route: 008
     Dates: start: 20161026
  5. CLAMOXYL                           /00249601/ [Suspect]
     Active Substance: AMOXICILLIN
     Dosage: UNK
     Route: 048
     Dates: start: 20161025
  6. OMEPRAZOLE. [Suspect]
     Active Substance: OMEPRAZOLE
     Indication: PRODUCT USED FOR UNKNOWN INDICATION
     Dosage: UNK
     Route: 048
     Dates: start: 201607, end: 20161026
  7. CLAMOXYL                           /00249601/ [Suspect]
     Active Substance: AMOXICILLIN
     Indication: ANTIBIOTIC PROPHYLAXIS
     Dosage: 1 G, EVERY FOUR HOURS
     Route: 042
     Dates: start: 20161025
  8. SUFENTA [Suspect]
     Active Substance: SUFENTANIL CITRATE
     Indication: EPIDURAL ANAESTHESIA
     Dosage: UNK
     Route: 008
     Dates: start: 20161026
  9. NAROPEINE [Suspect]
     Active Substance: ROPIVACAINE HYDROCHLORIDE
     Indication: EPIDURAL ANAESTHESIA
     Dosage: UNK
     Route: 008
     Dates: start: 20161026

REACTIONS (1)
  - Rash maculo-papular [Recovered/Resolved]

NARRATIVE: CASE EVENT DATE: 20161029
